FAERS Safety Report 6112487-7 (Version None)
Quarter: 2009Q1

REPORT INFORMATION
  Report Type: 
  Country: None (occurrence: None)
  Receive Date: 20090312
  Receipt Date: 20090305
  Transmission Date: 20090719
  Serious: Yes (Other)
  Sender: FDA-Public Use
  Company Number: US-WYE-H08516509

PATIENT

DRUGS (1)
  1. SIROLIMUS [Suspect]

REACTIONS (1)
  - PAPILLOEDEMA [None]
